FAERS Safety Report 8860699 (Version 1)
Quarter: 2012Q4

REPORT INFORMATION
  Report Type: Report from Study
  Country: US (occurrence: US)
  Receive Date: 20121025
  Receipt Date: 20121025
  Transmission Date: 20130627
  Serious: Yes (Hospitalization)
  Sender: FDA-Public Use
  Company Number: US-ABBOTT-12P-163-0980501-00

PATIENT
  Age: 53 Year
  Sex: Female
  Weight: 56.3 kg

DRUGS (1)
  1. HUMIRA [Suspect]
     Indication: CROHN^S DISEASE
     Route: 058
     Dates: start: 201208

REACTIONS (3)
  - Malnutrition [Unknown]
  - Crohn^s disease [Unknown]
  - Diarrhoea [Unknown]
